FAERS Safety Report 5710292-4 (Version None)
Quarter: 2008Q2

REPORT INFORMATION
  Report Type: 
  Country: None (occurrence: None)
  Receive Date: 20080418
  Receipt Date: 20080408
  Transmission Date: 20081010
  Serious: Yes (Hospitalization)
  Sender: FDA-Public Use
  Company Number: JP-PFIZER INC-2008028211

PATIENT
  Sex: Female
  Weight: 58 kg

DRUGS (3)
  1. FARMORUBICIN [Suspect]
     Indication: METASTASES TO LIVER
     Route: 013
     Dates: start: 20021004, end: 20050430
  2. SPHEREX [Suspect]
     Indication: METASTASES TO LIVER
     Route: 013
     Dates: start: 20021004, end: 20050430
  3. MITOMYCIN [Suspect]
     Indication: METASTASES TO LIVER
     Route: 013
     Dates: start: 20021004, end: 20050430

REACTIONS (5)
  - CONDITION AGGRAVATED [None]
  - HEPATIC ARTERY OCCLUSION [None]
  - HEPATIC FAILURE [None]
  - HEPATIC NECROSIS [None]
  - METASTASES TO LIVER [None]
